FAERS Safety Report 6552693-0 (Version None)
Quarter: 2010Q1

REPORT INFORMATION
  Report Type: 
  Country: None (occurrence: None)
  Receive Date: 20100126
  Receipt Date: 20100121
  Transmission Date: 20100710
  Serious: Yes (Life-Threatening, Hospitalization)
  Sender: FDA-Public Use
  Company Number: JP-EISAI INC.-E2090-00968-SPO-JP

PATIENT
  Sex: Female

DRUGS (14)
  1. EXCEGRAN [Suspect]
     Indication: SCHIZOPHRENIA
     Route: 048
     Dates: start: 20091209, end: 20100101
  2. DOGMATYL [Concomitant]
  3. PROTECADIN [Concomitant]
  4. ZETIA [Concomitant]
  5. PLAVIX [Concomitant]
  6. CALBLOCK [Concomitant]
  7. EVISTA [Concomitant]
  8. OLMETEC [Concomitant]
  9. PARIET [Concomitant]
  10. ASPIRIN [Concomitant]
  11. BENET [Concomitant]
  12. MUCOSTA [Concomitant]
  13. ALLEGRA [Concomitant]
  14. NERISONA [Concomitant]

REACTIONS (1)
  - DRUG RASH WITH EOSINOPHILIA AND SYSTEMIC SYMPTOMS [None]
